FAERS Safety Report 6243346-7 (Version None)
Quarter: 2009Q2

REPORT INFORMATION
  Report Type: 
  Country: None (occurrence: None)
  Receive Date: 20090624
  Receipt Date: 20090617
  Transmission Date: 20091009
  Serious: Yes (Other)
  Sender: FDA-Public Use
  Company Number: US-MERCK-0906USA03379

PATIENT
  Age: 36 Month
  Sex: Female

DRUGS (3)
  1. SINGULAIR [Suspect]
     Indication: HYPERSENSITIVITY
     Route: 048
     Dates: end: 20090101
  2. SINGULAIR [Suspect]
     Indication: ASTHMA
     Route: 048
     Dates: end: 20090101
  3. ALBUTEROL [Concomitant]
     Route: 065

REACTIONS (3)
  - AGITATION [None]
  - HOMICIDAL IDEATION [None]
  - INSOMNIA [None]
